FAERS Safety Report 20311802 (Version 1)
Quarter: 2022Q1

REPORT INFORMATION
  Report Type: Spontaneous
  Country: FR (occurrence: FR)
  Receive Date: 20220108
  Receipt Date: 20220108
  Transmission Date: 20220424
  Serious: Yes (Hospitalization, Other)
  Sender: FDA-Public Use
  Company Number: None

PATIENT
  Age: 12 Year
  Sex: Male
  Weight: 47 kg

DRUGS (3)
  1. SULFAMETHOXAZOLE\TRIMETHOPRIM [Suspect]
     Active Substance: SULFAMETHOXAZOLE\TRIMETHOPRIM
     Indication: Osteomyelitis
     Dosage: 800 MG, BID
     Route: 048
     Dates: start: 20211117, end: 20211211
  2. RIFAMPIN [Suspect]
     Active Substance: RIFAMPIN
     Indication: Osteomyelitis
     Dosage: 600 MG, BID
     Route: 048
     Dates: start: 20211117, end: 20211211
  3. CEFAZOLIN [Suspect]
     Active Substance: CEFAZOLIN
     Indication: Osteomyelitis
     Dosage: 150 MG/KG, QID
     Route: 042
     Dates: start: 20211213, end: 20211220

REACTIONS (4)
  - Eosinophilia [Not Recovered/Not Resolved]
  - Mixed liver injury [Recovering/Resolving]
  - Prothrombin time shortened [Recovering/Resolving]
  - Rash maculo-papular [Recovered/Resolved]

NARRATIVE: CASE EVENT DATE: 20211211
